FAERS Safety Report 6159641 (Version 3)
Quarter: 2012Q4

REPORT INFORMATION
  Report Type: Report from Study
  Country: JP (occurrence: JP)
  Receive Date: 20061101
  Receipt Date: 20120911
  Transmission Date: 20130627
  Serious: Yes (Death, Disabling, Other)
  Sender: FDA-Public Use
  Company Number: JP-ROCHE-468265

PATIENT
  Age: 23 Year
  Sex: Male

DRUGS (25)
  1. CELLCEPT [Suspect]
     Indication: PROPHYLAXIS AGAINST TRANSPLANT REJECTION
     Route: 048
     Dates: start: 20051109, end: 20051109
  2. CELLCEPT [Suspect]
     Route: 048
     Dates: start: 20051110, end: 20060828
  3. PREDNISOLONE [Suspect]
     Indication: PROPHYLAXIS AGAINST GRAFT VERSUS HOST DISEASE
     Route: 048
  4. PREDNISOLONE [Suspect]
     Route: 048
  5. PREDNISOLONE [Suspect]
     Route: 048
     Dates: start: 20051104, end: 20060731
  6. PREDNISOLONE [Suspect]
     Route: 048
     Dates: start: 20060801, end: 20060914
  7. METHYLPREDNISOLONE SODIUM SUCCINATE [Suspect]
     Indication: PROPHYLAXIS AGAINST TRANSPLANT REJECTION
     Route: 042
     Dates: start: 20051031, end: 20051123
  8. GANCICLOVIR SODIUM [Suspect]
     Indication: PROPHYLAXIS
     Route: 042
     Dates: start: 20051107, end: 20051127
  9. SULFAMETHOXAZOLE/TRIMETHOPRIM [Suspect]
     Indication: PROPHYLAXIS
     Dosage: TAKEN ON TUESDAY AND FRIDAY.
     Route: 048
  10. SULFAMETHOXAZOLE/TRIMETHOPRIM [Suspect]
     Dosage: TAKEN ON MONDAY, TUESDAY AND FRIDAY
     Route: 048
  11. ITRACONAZOLE [Suspect]
     Indication: PRODUCT USED FOR UNKNOWN INDICATION
     Route: 048
  12. ACICLOVIR [Suspect]
     Indication: PROPHYLAXIS
     Route: 065
     Dates: start: 20060210, end: 20060403
  13. CICLOSPORIN [Suspect]
     Indication: PROPHYLAXIS AGAINST GRAFT VERSUS HOST DISEASE
     Dosage: NO DETAILS PROVIDED.
     Route: 048
  14. CICLOSPORIN [Suspect]
     Route: 048
     Dates: start: 2004, end: 200501
  15. CICLOSPORIN [Suspect]
     Route: 048
  16. CICLOSPORIN [Suspect]
     Route: 048
     Dates: start: 20051031, end: 20060914
  17. SIMULECT [Concomitant]
     Indication: PROPHYLAXIS AGAINST TRANSPLANT REJECTION
     Route: 042
     Dates: start: 20051031, end: 20051104
  18. IMURAN [Concomitant]
     Indication: PROPHYLAXIS AGAINST TRANSPLANT REJECTION
     Route: 048
     Dates: start: 20051031, end: 20051108
  19. FUNGUARD [Concomitant]
     Indication: PROPHYLAXIS
     Route: 042
     Dates: start: 20051107, end: 20051124
  20. TARGOCID [Concomitant]
     Indication: PROPHYLAXIS
     Route: 042
     Dates: start: 20051108, end: 20051124
  21. OZEX [Concomitant]
     Indication: PROPHYLAXIS
     Route: 048
     Dates: start: 20051108, end: 20051124
  22. DIFLUCAN [Concomitant]
     Indication: PROPHYLAXIS
     Route: 048
  23. OMEPRAL [Concomitant]
     Route: 048
     Dates: start: 20051125, end: 20060717
  24. VALIXA [Concomitant]
     Indication: PROPHYLAXIS
     Route: 048
     Dates: start: 20051128, end: 20060210
  25. ALFAROL [Concomitant]
     Route: 048

REACTIONS (5)
  - Nervous system disorder [Fatal]
  - Encephalitis viral [Fatal]
  - Cytomegalovirus test positive [Recovered/Resolved]
  - Renal impairment [Not Recovered/Not Resolved]
  - Osteoporosis [Recovered/Resolved]
